FAERS Safety Report 25720832 (Version 1)
Quarter: 2025Q3

REPORT INFORMATION
  Report Type: Report from Study
  Country: KR (occurrence: KR)
  Receive Date: 20250825
  Receipt Date: 20250825
  Transmission Date: 20251020
  Serious: Yes (Hospitalization)
  Sender: ROCHE
  Company Number: KR-ROCHE-10000362442

PATIENT
  Age: 76 Year
  Sex: Male
  Weight: 73.6 kg

DRUGS (5)
  1. VABYSMO [Suspect]
     Active Substance: FARICIMAB-SVOA
     Indication: Neovascular age-related macular degeneration
     Route: 050
     Dates: start: 20250811
  2. VABYSMO [Suspect]
     Active Substance: FARICIMAB-SVOA
     Route: 050
     Dates: start: 20250717
  3. CRAVIT OPHTHALMIC SOLUTION [Concomitant]
     Route: 047
     Dates: start: 20250717
  4. taflotan 0.001 [Concomitant]
     Dosage: .0015 %, 1 DROP
     Dates: start: 20250327
  5. COSOPT [Concomitant]
     Active Substance: DORZOLAMIDE HYDROCHLORIDE\TIMOLOL MALEATE
     Dosage: 1 DROP
     Route: 047
     Dates: start: 20250327

REACTIONS (1)
  - Conjunctival haemorrhage [Recovered/Resolved]

NARRATIVE: CASE EVENT DATE: 20250721
